FAERS Safety Report 5425751-1 (Version None)
Quarter: 2007Q3

REPORT INFORMATION
  Report Type: 
  Country: None (occurrence: None)
  Receive Date: 20070731
  Receipt Date: 20070516
  Transmission Date: 20080115
  Serious: No
  Sender: FDA-Public Use
  Company Number: 2007PV032267

PATIENT
  Age: 73 Year
  Sex: Female
  Weight: 63 kg

DRUGS (3)
  1. EXENATIDE(EXENATIDE) PEN,DISPOSABLE [Suspect]
     Indication: TYPE 2 DIABETES MELLITUS
     Dosage: 5 UG, 2/D, SUBCUTANEOUS, 5 UG, DAILY (1/D), SUBCUTANEOUS
     Route: 058
     Dates: start: 20070301
  2. EXENATIDE(EXENATIDE) PEN,DISPOSABLE [Suspect]
     Indication: TYPE 2 DIABETES MELLITUS
     Dosage: 5 UG, 2/D, SUBCUTANEOUS, 5 UG, DAILY (1/D), SUBCUTANEOUS
     Route: 058
     Dates: start: 20070401
  3. EXENATIDE(EXENATIDE) PEN,DISPOSABLE [Suspect]

REACTIONS (11)
  - ABDOMINAL PAIN UPPER [None]
  - BLOOD GLUCOSE DECREASED [None]
  - BLOOD GLUCOSE INCREASED [None]
  - DECREASED APPETITE [None]
  - DIARRHOEA [None]
  - DIZZINESS [None]
  - FLATULENCE [None]
  - HYPOGLYCAEMIA [None]
  - NAUSEA [None]
  - TOOTH EXTRACTION [None]
  - WEIGHT DECREASED [None]
